FAERS Safety Report 5072991-X (Version None)
Quarter: 2006Q3

REPORT INFORMATION
  Report Type: 
  Country: None (occurrence: None)
  Receive Date: 20060802
  Receipt Date: 20060720
  Transmission Date: 20061208
  Serious: Yes (Other)
  Sender: FDA-Public Use
  Company Number: 2006089444

PATIENT
  Age: 4 Year
  Sex: Female

DRUGS (5)
  1. DOXORUBICIN HCL [Suspect]
     Indication: LUNG NEOPLASM
     Dosage: 160 MG/M*2
  2. CISPLATIN [Suspect]
     Indication: LUNG NEOPLASM
     Dosage: 525 MG/M*2
  3. CYCLOPHOSPHAMIDE [Suspect]
     Indication: LUNG NEOPLASM
     Dosage: 2400 MG/M*2
  4. VINCRISTINE SULFATE [Suspect]
     Indication: LUNG NEOPLASM
     Dosage: 13.5 MG/M2
  5. DACTINOMYCIN [Suspect]
     Indication: LUNG NEOPLASM
     Dosage: 0.45 MG/KG

REACTIONS (4)
  - LUNG NEOPLASM MALIGNANT [None]
  - MULTIPLE SCLEROSIS [None]
  - OPTIC NEURITIS [None]
  - RECURRENT CANCER [None]
